FAERS Safety Report 19834995 (Version 5)
Quarter: 2022Q1

REPORT INFORMATION
  Report Type: Report from Study
  Country: US (occurrence: None)
  Receive Date: 20210915
  Receipt Date: 20220202
  Transmission Date: 20220424
  Serious: Yes (Hospitalization)
  Sender: FDA-Public Use
  Company Number: US-ROCHE-2897905

PATIENT
  Age: 36 Year
  Sex: Female
  Weight: 115 kg

DRUGS (12)
  1. OCRELIZUMAB [Suspect]
     Active Substance: OCRELIZUMAB
     Indication: Relapsing-remitting multiple sclerosis
     Dosage: START DATE OF MOST RECENT DOSE OF BLINDED OCRELIZUMAB PRIOR TO AE/SAE: 21/JUN/2021
     Route: 042
     Dates: start: 20210609
  2. EXCEDRIN (UNITED STATES) [Concomitant]
     Indication: Headache
     Route: 048
     Dates: start: 2019
  3. CHOLESTYRAMINE [Concomitant]
     Active Substance: CHOLESTYRAMINE
     Dates: start: 20210204
  4. TETANUS TOXOID ADSORBED (VACCINE) [Concomitant]
     Active Substance: CLOSTRIDIUM TETANI TOXOID ANTIGEN (FORMALDEHYDE INACTIVATED)
     Dates: start: 2019
  5. INFLUENZA VIRUS VACCINE [Concomitant]
     Active Substance: INFLUENZA VIRUS VACCINE
     Dates: start: 2019
  6. MEASLES VIRUS VACCINE, LIVE [Concomitant]
     Active Substance: MEASLES VIRUS STRAIN ENDERS^ ATTENUATED EDMONSTON LIVE ANTIGEN
  7. MUMPS VACCINE [Concomitant]
     Active Substance: MUMPS VIRUS STRAIN B LEVEL JERYL LYNN LIVE ANTIGEN
  8. RUBELLA VIRUS VACCINE LIVE NOS [Concomitant]
     Active Substance: RUBELLA VIRUS STRAIN WISTAR RA 27/3 LIVE ANTIGEN
  9. LOVENOX [Concomitant]
     Active Substance: ENOXAPARIN SODIUM
     Route: 058
     Dates: start: 20210821, end: 20210821
  10. PEPCID [Concomitant]
     Active Substance: FAMOTIDINE
     Indication: Prophylaxis
     Route: 048
     Dates: start: 20210821, end: 20210825
  11. VITAMIN C [Concomitant]
     Active Substance: ASCORBIC ACID
     Indication: Lactic acidosis
     Route: 048
     Dates: start: 20210820, end: 20210820
  12. ZINC [Concomitant]
     Active Substance: ZINC
     Indication: Lactic acidosis
     Route: 048
     Dates: start: 20210820, end: 20210820

REACTIONS (2)
  - COVID-19 pneumonia [Recovered/Resolved]
  - Acute respiratory failure [Recovered/Resolved]

NARRATIVE: CASE EVENT DATE: 20210820
